FAERS Safety Report 5915357-X (Version None)
Quarter: 2008Q4

REPORT INFORMATION
  Report Type: 
  Country: None (occurrence: None)
  Receive Date: 20081010
  Receipt Date: 20081002
  Transmission Date: 20090506
  Serious: Yes (Other)
  Sender: FDA-Public Use
  Company Number: AU-ROCHE-505809

PATIENT
  Sex: Male
  Weight: 82 kg

DRUGS (12)
  1. CAPECITABINE [Suspect]
     Dosage: GIVEN ON DAYS 1-14 EVERY 3 WEEKS.
     Route: 048
     Dates: start: 20070119
  2. CAPECITABINE [Suspect]
     Dosage: GIVEN ON DAYS 1-14 EVERY 3 WEEKS. REDUCED BY 25% DUE TO FATIGUE.
     Route: 048
     Dates: end: 20080313
  3. BEVACIZUMAB [Suspect]
     Dosage: GIVEN ON DAY 1 EVERY 3 WEEKS. TREATMENT DELAYED FOR 3 WEEKS.
     Route: 042
     Dates: start: 20070119
  4. SOMAC [Concomitant]
     Route: 048
     Dates: start: 20060601, end: 20061001
  5. SEREPAX [Concomitant]
     Route: 048
     Dates: start: 20070110
  6. ASPIRIN [Concomitant]
     Route: 048
     Dates: start: 19900701
  7. ATENOLOL [Concomitant]
     Route: 048
     Dates: start: 19910701
  8. COVERSYL [Concomitant]
     Route: 048
     Dates: start: 19920701
  9. OXAZEPAM [Concomitant]
     Route: 048
     Dates: start: 20061117, end: 20070101
  10. ZOCOR [Concomitant]
     Route: 048
     Dates: start: 19910701
  11. ALPRIM [Concomitant]
     Route: 048
     Dates: start: 20070305, end: 20070311
  12. MAXOLON [Concomitant]
     Indication: PROPHYLAXIS
     Route: 048
     Dates: start: 20070119

REACTIONS (1)
  - SPLENIC INFARCTION [None]
